FAERS Safety Report 5339359-X (Version None)
Quarter: 2007Q2

REPORT INFORMATION
  Report Type: 
  Country: None (occurrence: None)
  Receive Date: 20070322
  Receipt Date: 20070118
  Transmission Date: 20071010
  Serious: Yes (Hospitalization)
  Sender: FDA-Public Use
  Company Number: 200615006BCC

PATIENT
  Age: 57 Year
  Sex: Female
  Weight: 58.0604 kg

DRUGS (2)
  1. ALEVE (CAPLET) [Suspect]
     Indication: ARTHRALGIA
     Dosage: 220 MG, BID, ORAL
     Route: 048
     Dates: start: 20040101
  2. OMEPRAZOLE [Concomitant]

REACTIONS (3)
  - GASTRIC ULCER [None]
  - GASTRIC ULCER HAEMORRHAGE [None]
  - HAEMORRHAGE [None]
